FAERS Safety Report 5920138-7 (Version None)
Quarter: 2008Q4

REPORT INFORMATION
  Report Type: 
  Country: None (occurrence: None)
  Receive Date: 20081015
  Receipt Date: 20081015
  Transmission Date: 20090506
  Serious: Yes (Hospitalization)
  Sender: FDA-Public Use
  Company Number: None

PATIENT
  Sex: Female
  Weight: 93.58 kg

DRUGS (4)
  1. BEVACIZUMAB (RHUMAB VEGF) [Suspect]
     Dosage: 920 MG
     Dates: start: 20080925, end: 20080925
  2. CYCLOPHOSPHAMIDE [Suspect]
     Dosage: 1200 MG
     Dates: end: 20080925
  3. DOXORUBICIN HYDROCHLORIDE [Suspect]
     Dosage: 120 MG
     Dates: end: 20080925
  4. NEULASTA [Suspect]
     Dosage: 6 MG
     Dates: end: 20080926

REACTIONS (2)
  - MEDICAL DEVICE COMPLICATION [None]
  - PNEUMONIA [None]
